FAERS Safety Report 8029992-9 (Version None)
Quarter: 2012Q1

REPORT INFORMATION
  Report Type: 
  Country: None (occurrence: None)
  Receive Date: 20120105
  Receipt Date: 20120105
  Transmission Date: 20120608
  Serious: Yes (Other)
  Sender: FDA-Public Use
  Company Number: SIM_00118_2011

PATIENT
  Sex: Female

DRUGS (1)
  1. SIMILASAN STYE EYE RELIEF 10 ML (HOMEOPATHIC) [Suspect]
     Indication: HORDEOLUM
     Dosage: (1X, 046 OPHTHALMIC)
     Route: 047
     Dates: start: 20110225, end: 20110225

REACTIONS (6)
  - CHEMICAL EYE INJURY [None]
  - EYE IRRITATION [None]
  - INJURY CORNEAL [None]
  - CELLULITIS [None]
  - BLINDNESS TRANSIENT [None]
  - CORNEAL ABRASION [None]
